FAERS Safety Report 7931168-8 (Version None)
Quarter: 2011Q4

REPORT INFORMATION
  Report Type: 
  Country: None (occurrence: None)
  Receive Date: 20111121
  Receipt Date: 20111114
  Transmission Date: 20120403
  Serious: Yes (Disabling, Other)
  Sender: FDA-Public Use
  Company Number: AU-MERCK-1111USA01540

PATIENT
  Age: 65 Year
  Sex: Female

DRUGS (4)
  1. SINEMET [Suspect]
     Route: 048
  2. PRAMIPEXOLE DIHYDROCHLORIDE [Concomitant]
     Indication: PARKINSON'S DISEASE
     Route: 048
     Dates: start: 20080101
  3. SINEMET [Suspect]
     Indication: PARKINSON'S DISEASE
     Dosage: 100/25
     Route: 048
     Dates: start: 20000101
  4. SINEMET [Suspect]
     Route: 048

REACTIONS (5)
  - DYSKINESIA [None]
  - PARKINSON'S DISEASE [None]
  - THERAPEUTIC RESPONSE DECREASED [None]
  - PRODUCT QUALITY ISSUE [None]
  - WRONG TECHNIQUE IN DRUG USAGE PROCESS [None]
